FAERS Safety Report 19939833 (Version 1)
Quarter: 2021Q4

REPORT INFORMATION
  Report Type: Spontaneous
  Country: US (occurrence: US)
  Receive Date: 20211012
  Receipt Date: 20211012
  Transmission Date: 20220303
  Serious: No
  Sender: FDA-Public Use
  Company Number: US-ELI_LILLY_AND_COMPANY-US202110002563

PATIENT
  Age: 51 Year
  Sex: Female

DRUGS (3)
  1. HUMALOG [Suspect]
     Active Substance: INSULIN LISPRO
     Indication: Type 1 diabetes mellitus
     Dosage: 25 U, PRN
     Route: 065
  2. DEXTROSE [Concomitant]
     Active Substance: DEXTROSE
     Indication: Blood glucose decreased
     Dosage: UNK UNK, UNKNOWN
  3. DEXTROSE [Concomitant]
     Active Substance: DEXTROSE
     Indication: Type 1 diabetes mellitus

REACTIONS (2)
  - Blood glucose increased [Unknown]
  - Blood glucose decreased [Unknown]
